FAERS Safety Report 5936366-0 (Version None)
Quarter: 2008Q4

REPORT INFORMATION
  Report Type: 
  Country: None (occurrence: None)
  Receive Date: 20081030
  Receipt Date: 20081023
  Transmission Date: 20090506
  Serious: No
  Sender: FDA-Public Use
  Company Number: US-ASTRAZENECA-2008UW23937

PATIENT
  Age: 47 Year
  Sex: Female
  Weight: 69.9 kg

DRUGS (7)
  1. PULMICORT-100 [Suspect]
     Indication: ASTHMA
     Dosage: 180/4.5 MCG, 2 PUFFS TWICE DAILY
     Route: 055
     Dates: start: 20071001, end: 20081001
  2. PULMICORT-100 [Suspect]
     Indication: EMPHYSEMA
     Dosage: 180/4.5 MCG, 2 PUFFS TWICE DAILY
     Route: 055
     Dates: start: 20071001, end: 20081001
  3. ALBUTEROL [Concomitant]
  4. CLONAZEPAM [Concomitant]
  5. PREVACID [Concomitant]
  6. RHINOCORT [Concomitant]
     Route: 045
  7. FLU SHOT [Concomitant]
     Dates: start: 20081022

REACTIONS (6)
  - BLISTER [None]
  - CHEST DISCOMFORT [None]
  - DRUG EFFECT DECREASED [None]
  - EYE PRURITUS [None]
  - SINUS CONGESTION [None]
  - TREMOR [None]
